FAERS Safety Report 19037043 (Version 1)
Quarter: 2021Q1

REPORT INFORMATION
  Report Type: Other
  Country: DE (occurrence: DE)
  Receive Date: 20210322
  Receipt Date: 20210322
  Transmission Date: 20210420
  Serious: Yes (Hospitalization, Other)
  Sender: FDA-Public Use
  Company Number: DE-LUPIN PHARMACEUTICALS INC.-2021-03442

PATIENT
  Age: 17 Year
  Sex: Female
  Weight: 63 kg

DRUGS (1)
  1. LAMOTRIGINE. [Suspect]
     Active Substance: LAMOTRIGINE
     Indication: IDIOPATHIC GENERALISED EPILEPSY
     Dosage: 200 MILLIGRAM, QD (2 SEPARATED DOSES)
     Route: 048
     Dates: start: 201702

REACTIONS (6)
  - Treatment noncompliance [Recovered/Resolved]
  - Fall [Unknown]
  - Generalised tonic-clonic seizure [Recovered/Resolved]
  - Product administration error [Recovered/Resolved]
  - Product dose omission issue [Recovered/Resolved]
  - Underdose [Recovered/Resolved]

NARRATIVE: CASE EVENT DATE: 20180825
